FAERS Safety Report 10109381 (Version 1)
Quarter: 2014Q2

REPORT INFORMATION
  Report Type: Spontaneous
  Country: US (occurrence: None)
  Receive Date: 20140424
  Receipt Date: 20140424
  Transmission Date: 20141212
  Serious: Yes (Life-Threatening, Hospitalization)
  Sender: FDA-Public Use
  Company Number: None

PATIENT
  Age: 15 Year
  Sex: Male
  Weight: 45.36 kg

DRUGS (1)
  1. ARGININE [Suspect]
     Indication: BLOOD GROWTH HORMONE
     Dosage: SHOT, ONCE, INTO A VEIN
     Dates: start: 20140422

REACTIONS (2)
  - Haemorrhage [None]
  - Renal vein thrombosis [None]
